FAERS Safety Report 8217929-9 (Version None)
Quarter: 2012Q1

REPORT INFORMATION
  Report Type: 
  Country: None (occurrence: None)
  Receive Date: 20120319
  Receipt Date: 20120314
  Transmission Date: 20120608
  Serious: Yes (Hospitalization, Other)
  Sender: FDA-Public Use
  Company Number: US-AMGEN-USACT2011024881

PATIENT
  Age: 69 Year
  Sex: Male
  Weight: 78.413 kg

DRUGS (7)
  1. OXYCODONE AND ACETAMINOPHEN [Concomitant]
     Dosage: UNK UNK, PRN
  2. ZOFRAN [Concomitant]
  3. PANITUMUMAB [Suspect]
     Indication: HEAD AND NECK CANCER
     Dosage: 9 MG/M2, UNK
     Route: 042
     Dates: start: 20110210, end: 20110503
  4. CISPLATIN [Concomitant]
     Indication: HEAD AND NECK CANCER
     Dosage: 33 MG/M2, QWK
     Route: 042
     Dates: start: 20110405, end: 20110524
  5. FENTANYL [Concomitant]
     Dosage: 25 MUG, UNK
  6. AMITRIPTYLENE [Concomitant]
     Dosage: 25 MG, UNK
  7. DEXAMETHASONE [Concomitant]

REACTIONS (14)
  - LOSS OF CONSCIOUSNESS [None]
  - ANAEMIA [None]
  - MUSCULAR WEAKNESS [None]
  - TREMOR [None]
  - FEBRILE NEUTROPENIA [None]
  - URINARY INCONTINENCE [None]
  - CONFUSIONAL STATE [None]
  - DELIRIUM [None]
  - CHILLS [None]
  - SYNCOPE [None]
  - HYPOVOLAEMIA [None]
  - AGITATION [None]
  - APHONIA [None]
  - PYREXIA [None]
